FAERS Safety Report 8978236 (Version 2)
Quarter: 2013Q1

REPORT INFORMATION
  Report Type: Spontaneous
  Country: JP (occurrence: JP)
  Receive Date: 20121221
  Receipt Date: 20130227
  Transmission Date: 20140127
  Serious: Yes (Hospitalization, Other)
  Sender: FDA-Public Use
  Company Number: JP-PFIZER INC-2012322395

PATIENT
  Age: 65 Year
  Sex: Female
  Weight: 47.7 kg

DRUGS (14)
  1. ZITHROMAC [Suspect]
     Indication: UPPER RESPIRATORY TRACT INFECTION
     Dosage: 500 MG DAILY
     Route: 048
     Dates: start: 20121214, end: 20121216
  2. LENDORMIN [Concomitant]
     Dosage: UNK
  3. MUCODYNE [Concomitant]
     Dosage: UNK
  4. CODEINE PHOSPHATE [Concomitant]
     Dosage: UNK
  5. LOXOPROFEN [Concomitant]
     Indication: PAIN
     Dosage: 60 MG, AS NEEDED
     Route: 048
     Dates: start: 20121120
  6. MIYA-BM [Concomitant]
     Indication: DIARRHOEA
     Dosage: 1 G, 3X/DAY
     Route: 048
     Dates: start: 20121121
  7. MYSLEE [Concomitant]
     Indication: INSOMNIA
     Dosage: 5 MG, AS NEEDED
     Route: 048
     Dates: start: 20121125
  8. CEREKINON [Concomitant]
     Indication: DIARRHOEA
     Dosage: 100 MG, 3X/DAY
     Route: 048
     Dates: start: 20121126, end: 20121206
  9. SLOW-K [Concomitant]
     Indication: BLOOD POTASSIUM DECREASED
     Dosage: 1200 MG, 2X/DAY
     Route: 048
     Dates: start: 20121126
  10. REFLEX, UNSPECIFIED [Concomitant]
     Indication: DEPRESSION
     Dosage: 15 MG, 1X/DAY
     Route: 048
     Dates: start: 20121128
  11. NEXIUM [Concomitant]
     Indication: GASTROOESOPHAGEAL REFLUX DISEASE
     Dosage: 20 MG, 1X/DAY
     Route: 048
     Dates: start: 20121203
  12. NAUZELIN [Concomitant]
     Indication: NAUSEA
     Dosage: 10 MG, 3X/DAY
     Route: 048
     Dates: start: 20121203, end: 20121210
  13. SANMEL [Concomitant]
     Indication: DYSPEPSIA
     Dosage: 20 ML, 3X/DAY
     Route: 048
     Dates: start: 20121203
  14. PRIMPERAN [Concomitant]
     Indication: NAUSEA
     Dosage: 10 MG, AS NEEDED
     Route: 041
     Dates: start: 20121125

REACTIONS (2)
  - Sinus arrest [Recovered/Resolved]
  - Cardio-respiratory arrest [Recovered/Resolved]
